FAERS Safety Report 18504191 (Version 1)
Quarter: 2020Q4

REPORT INFORMATION
  Report Type: Spontaneous
  Country: US (occurrence: US)
  Receive Date: 20201113
  Receipt Date: 20201113
  Transmission Date: 20210114
  Serious: No
  Sender: FDA-Public Use
  Company Number: US-AMGEN-USASP2020177167

PATIENT
  Age: 95 Year
  Sex: Male

DRUGS (1)
  1. ARANESP [Suspect]
     Active Substance: DARBEPOETIN ALFA
     Indication: BLOOD DISORDER
     Dosage: UNK UNK, Q3WK
     Route: 065
     Dates: start: 2019

REACTIONS (2)
  - Oedema [Unknown]
  - Dyspnoea [Unknown]
